FAERS Safety Report 12532269 (Version 1)
Quarter: 2016Q3

REPORT INFORMATION
  Report Type: Report from Study
  Country: US (occurrence: US)
  Receive Date: 20160706
  Receipt Date: 20160706
  Transmission Date: 20161109
  Serious: Yes (Other)
  Sender: FDA-Public Use
  Company Number: US-GILEAD-2016-0221031

PATIENT
  Age: 58 Year
  Sex: Male

DRUGS (2)
  1. RIBAVIRIN. [Concomitant]
     Active Substance: RIBAVIRIN
     Indication: HEPATITIS C
     Dosage: UNK UNK, BID
     Route: 065
  2. SOFOSBUVIR [Suspect]
     Active Substance: SOFOSBUVIR
     Indication: HEPATITIS C
     Dosage: 400 MG, QD
     Route: 048
     Dates: start: 20140321, end: 20141003

REACTIONS (14)
  - Formication [Unknown]
  - Fatigue [Unknown]
  - Depression [Unknown]
  - Irritability [Unknown]
  - Cognitive disorder [Unknown]
  - Memory impairment [Unknown]
  - Weight decreased [Unknown]
  - Asthenia [Unknown]
  - Disturbance in attention [Unknown]
  - Rash [Unknown]
  - Anxiety [Unknown]
  - Influenza [Unknown]
  - Insomnia [Unknown]
  - Pruritus generalised [Unknown]
